FAERS Safety Report 7581494-X (Version None)
Quarter: 2011Q2

REPORT INFORMATION
  Report Type: 
  Country: None (occurrence: None)
  Receive Date: 20110629
  Receipt Date: 20110620
  Transmission Date: 20111010
  Serious: Yes (Hospitalization, Other)
  Sender: FDA-Public Use
  Company Number: PHHY2011AU39235

PATIENT
  Sex: Male

DRUGS (7)
  1. CLOZAPINE [Suspect]
     Dosage: 450 MG,
     Dates: start: 20100422
  2. CLOZAPINE [Suspect]
     Indication: SCHIZOPHRENIA
     Dosage: 500 MG,
     Dates: start: 20091111
  3. VALPROATE BISMUTH [Concomitant]
     Dosage: 500 MG, UNK
  4. VALPROATE BISMUTH [Concomitant]
     Dosage: 1000 MG, UNK
  5. CLOZAPINE [Suspect]
     Dosage: 500 MG
     Dates: start: 20100428
  6. CLOZAPINE [Suspect]
     Dosage: 525 MG
     Dates: start: 20110506
  7. CLOZAPINE [Suspect]
     Dosage: 550 MG,
     Dates: start: 20100506

REACTIONS (4)
  - SCHIZOPHRENIA [None]
  - ELECTROCARDIOGRAM ABNORMAL [None]
  - SINUS TACHYCARDIA [None]
  - ELECTROCARDIOGRAM QT PROLONGED [None]
